FAERS Safety Report 9543792 (Version 1)
Quarter: 2013Q3

REPORT INFORMATION
  Report Type: Report from Study
  Country: BR (occurrence: BR)
  Receive Date: 20130923
  Receipt Date: 20130923
  Transmission Date: 20140515
  Serious: Yes (Other)
  Sender: FDA-Public Use
  Company Number: PHHY2013BR105555

PATIENT
  Sex: Female
  Weight: 57 kg

DRUGS (2)
  1. EXELON PATCH [Suspect]
     Indication: DISORIENTATION
     Dosage: UNK UKN, UNK
     Route: 062
  2. EXELON PATCH [Suspect]
     Dosage: 4.6 MG (PATCH 5 CM2), DAILY
     Route: 062
     Dates: start: 201302

REACTIONS (4)
  - Chronic obstructive pulmonary disease [Unknown]
  - Gastrointestinal carcinoma [Unknown]
  - Body height decreased [Unknown]
  - Disorientation [Unknown]
